FAERS Safety Report 6150568-2 (Version None)
Quarter: 2009Q2

REPORT INFORMATION
  Report Type: 
  Country: None (occurrence: None)
  Receive Date: 20090409
  Receipt Date: 20090401
  Transmission Date: 20091009
  Serious: Yes (Other)
  Sender: FDA-Public Use
  Company Number: KR-PFIZER INC-2009192020

PATIENT

DRUGS (3)
  1. METHYLPREDNISOLONE ACETATE AND METHYLPREDNISOLONE SODIUM SUCCINATE AND [Suspect]
     Indication: DYSPNOEA
     Dosage: 62.5 MG, UNK
  2. AMINOPHYLLINE [Concomitant]
     Indication: DYSPNOEA
  3. FUROSEMIDE [Concomitant]
     Indication: DYSPNOEA

REACTIONS (1)
  - PANNICULITIS [None]
